FAERS Safety Report 10976967 (Version 1)
Quarter: 2015Q2

REPORT INFORMATION
  Report Type: Spontaneous
  Country: US (occurrence: US)
  Receive Date: 20150402
  Receipt Date: 20150402
  Transmission Date: 20150821
  Serious: Yes (Hospitalization)
  Sender: FDA-Public Use
  Company Number: US-ROCHE-1558834

PATIENT
  Sex: Male

DRUGS (9)
  1. NUTROPIN [Suspect]
     Active Substance: SOMATROPIN
     Indication: PRODUCT USED FOR UNKNOWN INDICATION
     Route: 058
     Dates: start: 20141016
  2. PERCOCET [Concomitant]
     Active Substance: ACETAMINOPHEN\OXYCODONE HYDROCHLORIDE
  3. MORPHINE [Concomitant]
     Active Substance: MORPHINE
  4. ALBUTEROL. [Concomitant]
     Active Substance: ALBUTEROL
  5. AMBIEN [Concomitant]
     Active Substance: ZOLPIDEM TARTRATE
  6. ATENOLOL. [Concomitant]
     Active Substance: ATENOLOL
  7. SINGULAIR [Concomitant]
     Active Substance: MONTELUKAST SODIUM
  8. ENBREL [Concomitant]
     Active Substance: ETANERCEPT
  9. ANDROGEL [Concomitant]
     Active Substance: TESTOSTERONE

REACTIONS (1)
  - Infection [Unknown]
